FAERS Safety Report 15658687 (Version 1)
Quarter: 2018Q4

REPORT INFORMATION
  Report Type: Spontaneous
  Country: IL (occurrence: IL)
  Receive Date: 20181126
  Receipt Date: 20181126
  Transmission Date: 20190205
  Serious: Yes (Disabling)
  Sender: FDA-Public Use
  Company Number: PHHY2018IL165815

PATIENT
  Age: 67 Year
  Sex: Male

DRUGS (4)
  1. EXFORGE [Suspect]
     Active Substance: AMLODIPINE BESYLATE\VALSARTAN
     Indication: HYPERTENSION
     Dosage: UNK
     Route: 065
     Dates: start: 20110101
  2. ASPIRIN. [Concomitant]
     Active Substance: ASPIRIN
     Indication: PRODUCT USED FOR UNKNOWN INDICATION
     Route: 065
  3. BONDORMIN [Concomitant]
     Active Substance: BROTIZOLAM
     Indication: PRODUCT USED FOR UNKNOWN INDICATION
     Route: 065
  4. CRESTOR [Concomitant]
     Active Substance: ROSUVASTATIN CALCIUM
     Indication: PRODUCT USED FOR UNKNOWN INDICATION
     Route: 065

REACTIONS (2)
  - Dizziness [Unknown]
  - Gait disturbance [Unknown]
